FAERS Safety Report 17297557 (Version 1)
Quarter: 2020Q1

REPORT INFORMATION
  Report Type: Spontaneous
  Country: US (occurrence: US)
  Receive Date: 20200121
  Receipt Date: 20200121
  Transmission Date: 20200409
  Serious: Yes (Disabling)
  Sender: FDA-Public Use
  Company Number: None

PATIENT
  Age: 17 Year
  Sex: Female
  Weight: 76.2 kg

DRUGS (6)
  1. NEXPLANON [Suspect]
     Active Substance: ETONOGESTREL
  2. PEPPERMINT TEA [Concomitant]
  3. BB12 [Concomitant]
  4. LATUDA [Concomitant]
     Active Substance: LURASIDONE HYDROCHLORIDE
  5. GINGER TEA [Concomitant]
     Active Substance: GINGER
  6. ADZENYS [Concomitant]

REACTIONS (10)
  - Chest pain [None]
  - Syncope [None]
  - Crying [None]
  - Dysphemia [None]
  - Swelling [None]
  - Myalgia [None]
  - Muscle hypertrophy [None]
  - Anger [None]
  - Dysphonia [None]
  - Dizziness [None]
